FAERS Safety Report 5909228-2 (Version None)
Quarter: 2008Q4

REPORT INFORMATION
  Report Type: 
  Country: None (occurrence: None)
  Receive Date: 20081006
  Receipt Date: 20080930
  Transmission Date: 20090506
  Serious: Yes (Hospitalization)
  Sender: FDA-Public Use
  Company Number: PHHY2008DE21330

PATIENT
  Sex: Female
  Weight: 84.9 kg

DRUGS (6)
  1. EUCREAS [Suspect]
     Dosage: UNK
     Dates: start: 20080725, end: 20080816
  2. TOREM [Concomitant]
     Dosage: 10
  3. AMLODIPINE [Concomitant]
     Dosage: 1 DF, QD
  4. ATACAND [Concomitant]
     Dosage: 1 DF, QD
  5. BELOC-ZOC FORTE [Concomitant]
     Dosage: 1 DF, QD
  6. FENOFIBRATE [Concomitant]
     Dosage: 1 DF, QD

REACTIONS (7)
  - ANGIOEDEMA [None]
  - DYSPHAGIA [None]
  - DYSPNOEA [None]
  - GLOSSODYNIA [None]
  - LIP SWELLING [None]
  - ORAL DISCOMFORT [None]
  - SWOLLEN TONGUE [None]
